FAERS Safety Report 10581106 (Version 1)
Quarter: 2014Q4

REPORT INFORMATION
  Report Type: Spontaneous
  Country: CH (occurrence: None)
  Receive Date: 20141110
  Receipt Date: 20141110
  Transmission Date: 20150529
  Serious: Yes (Hospitalization)
  Sender: FDA-Public Use
  Company Number: 20140708

PATIENT
  Age: 66 Year
  Sex: Male

DRUGS (10)
  1. ESIDREX (HYDROCHLOROTHIAZIDE) [Concomitant]
  2. LANTUS (INSULIN GLARGINE RECOMBINANT) [Concomitant]
  3. COVERAM (AMLODIPINE BESILATE/PERINDOPRIL ARGININE) [Concomitant]
  4. GLUCOPHAGE [Concomitant]
     Active Substance: METFORMIN HYDROCHLORIDE
  5. ASPEGIC (ACETYLSALICYLATE LYSINE) [Concomitant]
  6. NOVORAPID [Concomitant]
     Active Substance: INSULIN ASPART
  7. FERINJECT [Suspect]
     Active Substance: FERRIC CARBOXYMALTOSE
     Indication: PRODUCT USED FOR UNKNOWN INDICATION
     Route: 041
     Dates: start: 20140924, end: 20140924
  8. CRESTOR [Concomitant]
     Active Substance: ROSUVASTATIN CALCIUM
  9. UVEDOSE (COLECALCIFEROL) [Concomitant]
  10. EUPRESSYL (URAPIDIL) [Concomitant]

REACTIONS (6)
  - Chest pain [None]
  - Malaise [None]
  - Coma [None]
  - Blood pressure increased [None]
  - Clonus [None]
  - Urinary incontinence [None]

NARRATIVE: CASE EVENT DATE: 20140924
